FAERS Safety Report 6769498-8 (Version None)
Quarter: 2010Q2

REPORT INFORMATION
  Report Type: 
  Country: None (occurrence: None)
  Receive Date: 20100608
  Receipt Date: 20100602
  Transmission Date: 20101027
  Serious: Yes (Hospitalization)
  Sender: FDA-Public Use
  Company Number: WAES 1003USA04851

PATIENT
  Age: 86 Year
  Sex: Male

DRUGS (5)
  1. FOSAMAX [Suspect]
     Indication: OSTEOPOROSIS
     Dosage: 35 MG/WKY/ PO
     Route: 048
     Dates: start: 20080111, end: 20090804
  2. LAXOBERON [Concomitant]
  3. MG OXIDE [Concomitant]
  4. PURSENNID [Concomitant]
  5. SINEMET [Concomitant]

REACTIONS (1)
  - PNEUMONIA ASPIRATION [None]
